FAERS Safety Report 9899545 (Version 2)
Quarter: 2014Q1

REPORT INFORMATION
  Report Type: Spontaneous
  Country: RU (occurrence: RU)
  Receive Date: 20140214
  Receipt Date: 20140214
  Transmission Date: 20141002
  Serious: Yes (Other)
  Sender: FDA-Public Use
  Company Number: RU-PFIZER INC-2014013747

PATIENT
  Age: 23 Year
  Sex: Female
  Weight: 50 kg

DRUGS (1)
  1. ZELDOX [Suspect]
     Indication: SCHIZOPHRENIA, PARANOID TYPE
     Dosage: 80 MG, 1X/DAY (IN THE MORNING)
     Route: 048
     Dates: start: 20131002, end: 20131013

REACTIONS (7)
  - Mental retardation [Recovered/Resolved]
  - Tic [Recovered/Resolved]
  - Hallucination, auditory [Recovering/Resolving]
  - Nausea [Recovered/Resolved]
  - Vomiting [Recovered/Resolved]
  - Dizziness [Recovered/Resolved]
  - General physical health deterioration [Recovered/Resolved]
